FAERS Safety Report 22756631 (Version 3)
Quarter: 2023Q4

REPORT INFORMATION
  Report Type: Spontaneous
  Country: CA (occurrence: CA)
  Receive Date: 20230727
  Receipt Date: 20231120
  Transmission Date: 20240109
  Serious: Yes (Other)
  Sender: FDA-Public Use
  Company Number: CA-PFIZER INC-202300258910

PATIENT
  Age: 74 Year
  Sex: Male
  Weight: 67.574 kg

DRUGS (7)
  1. VYNDAQEL [Suspect]
     Active Substance: TAFAMIDIS MEGLUMINE
     Indication: Cardiac amyloidosis
     Dosage: 80 MG,1X/DAY (2 X 40MG)
     Route: 048
     Dates: start: 20220408, end: 20230715
  2. APIXABAN [Concomitant]
     Active Substance: APIXABAN
     Dosage: 2.5 MG, 2X/DAY
  3. FUROSEMIDE [Concomitant]
     Active Substance: FUROSEMIDE
     Dosage: 80 MG, 2X/DAY
  4. METOPROLOL [Concomitant]
     Active Substance: METOPROLOL
     Dosage: 25 MG, 2X/DAY
  5. METOPROLOL [Concomitant]
     Active Substance: METOPROLOL
     Dosage: 50MG IN THE AM AND 25MG IN THE EVENING
  6. SIMVASTATIN [Concomitant]
     Active Substance: SIMVASTATIN
  7. SPIRONOLACTONE [Concomitant]
     Active Substance: SPIRONOLACTONE
     Dosage: 25 MG

REACTIONS (7)
  - Cardiac failure [Unknown]
  - Jugular vein distension [Unknown]
  - Oedema peripheral [Unknown]
  - Hepatomegaly [Unknown]
  - Ejection fraction decreased [Unknown]
  - Atrial flutter [Unknown]
  - Cardiac hypertrophy [Unknown]
